FAERS Safety Report 17799667 (Version 1)
Quarter: 2020Q2

REPORT INFORMATION
  Report Type: Report from Study
  Country: FR (occurrence: FR)
  Receive Date: 20200518
  Receipt Date: 20200518
  Transmission Date: 20200714
  Serious: Yes (Death, Life-Threatening)
  Sender: FDA-Public Use
  Company Number: FR-BAYER-2020-089022

PATIENT
  Age: 55 Year
  Sex: Male

DRUGS (7)
  1. FIBRINOGEN [Concomitant]
     Active Substance: FIBRINOGEN HUMAN
     Indication: HAEMORRHAGIC DISORDER
     Dosage: 6 GRAM TOTAL INTRA- AND POST-OPERATIVELY
     Dates: start: 20191108
  2. APROTININ (APROTININ) [Suspect]
     Active Substance: APROTININ
     Indication: HEART TRANSPLANT
     Dosage: 413 MILLILITRE EVERY 1 DAY(S) LOADING DOSE 1 MILLION KIU PUMP PRIMING DOSE 1 MILLION KIU TOTAL CONTI
     Route: 065
     Dates: start: 20191108, end: 20191108
  3. HEPARIN [Concomitant]
     Active Substance: HEPARIN SODIUM
     Indication: ANTICOAGULANT THERAPY
     Dosage: 75 KILO-INTERNATIONAL UNIT TOTAL DURING SURGERY
     Route: 065
     Dates: start: 20191108
  4. FRESH FROZEN PLASMA [Concomitant]
     Active Substance: HUMAN PLASMA
     Indication: TRANSFUSION
     Dosage: 1940 MILLILITRE TOTAL INTRAAND POST-OPERATIVELY
  5. PLATELETS [Concomitant]
     Active Substance: HUMAN PLATELET, ALLOGENIC
     Indication: PLATELET TRANSFUSION
     Dosage: 386 MILLILITRE TOTAL 386
     Dates: start: 20191108
  6. RED BLOOD CELLS [Concomitant]
     Active Substance: HUMAN RED BLOOD CELL
     Indication: PACKED RED BLOOD CELL TRANSFUSION
     Dosage: 1698 MILLILITRE TOTAL INTRAAND POST-OPERATIVELY
     Dates: start: 20191108
  7. PROTHROMBIN COMPLEX CONCENTRATE NOS [Concomitant]
     Active Substance: COAGULATION FACTOR IX HUMAN\COAGULATION FACTOR VII HUMAN\COAGULATION FACTOR X HUMAN\PROTHROMBIN
     Indication: TRANSFUSION
     Dosage: 2500 MILLILITRE TOTAL TRANSFUSION
     Dates: start: 20191108

REACTIONS (2)
  - Product use in unapproved indication [Unknown]
  - Disseminated intravascular coagulation [Fatal]

NARRATIVE: CASE EVENT DATE: 20191108
